FAERS Safety Report 7269578-7 (Version None)
Quarter: 2011Q1

REPORT INFORMATION
  Report Type: 
  Country: None (occurrence: None)
  Receive Date: 20110202
  Receipt Date: 20110124
  Transmission Date: 20110831
  Serious: Yes (Other)
  Sender: FDA-Public Use
  Company Number: US-AMGEN-USASP2011004494

PATIENT
  Age: 45 Year
  Sex: Male

DRUGS (8)
  1. ENBREL [Suspect]
     Indication: PSORIASIS
     Dosage: 50 MG, UNK
     Dates: start: 20040101
  2. TETRACYCLINE [Concomitant]
     Dosage: UNK
  3. ENBREL [Suspect]
     Indication: PSORIATIC ARTHROPATHY
  4. HUMIRA [Concomitant]
     Dosage: UNK
  5. CYCLOSPORINE [Concomitant]
     Dosage: UNK UNK, QD
     Dates: start: 20090101
  6. SIMVASTATIN [Concomitant]
     Indication: BLOOD CHOLESTEROL INCREASED
     Dosage: UNK
     Dates: start: 20070101
  7. OPIOIDS [Concomitant]
     Dosage: UNK
  8. REMICADE [Concomitant]
     Dosage: UNK

REACTIONS (10)
  - IMMUNE SYSTEM DISORDER [None]
  - PSORIATIC ARTHROPATHY [None]
  - BLOOD CHOLESTEROL INCREASED [None]
  - FIBROMYALGIA [None]
  - WRIST SURGERY [None]
  - PSORIASIS [None]
  - JOINT DISLOCATION [None]
  - TOOTH ABSCESS [None]
  - MEMORY IMPAIRMENT [None]
  - PAIN [None]
